FAERS Safety Report 8760238 (Version 2)
Quarter: 2013Q1

REPORT INFORMATION
  Report Type: Spontaneous
  Country: ZA (occurrence: None)
  Receive Date: 20120817
  Receipt Date: 20121220
  Transmission Date: 20140127
  Serious: Yes (Other)
  Sender: FDA-Public Use
  Company Number: SAF/SAF/12/0025308

PATIENT
  Sex: 0

DRUGS (1)
  1. TOPRAZ (MONTELUKAST) [Suspect]
     Indication: PRODUCT USED FOR UNKNOWN INDICATION

REACTIONS (4)
  - Asthma [None]
  - Sinusitis [None]
  - Rhinitis [None]
  - Drug ineffective [None]
